FAERS Safety Report 10932602 (Version 1)
Quarter: 2015Q1

REPORT INFORMATION
  Report Type: Spontaneous
  Country: US (occurrence: None)
  Receive Date: 20150318
  Receipt Date: 20150318
  Transmission Date: 20150721
  Serious: Yes (Hospitalization, Other)
  Sender: FDA-Public Use
  Company Number: US-ZYDUS-007029

PATIENT
  Age: 7 Week
  Sex: Female

DRUGS (1)
  1. AMIODARONE [Suspect]
     Active Substance: AMIODARONE
     Indication: SUPRAVENTRICULAR TACHYCARDIA

REACTIONS (8)
  - Acute kidney injury [None]
  - Transaminases increased [None]
  - Thrombocytopenia [None]
  - Circulatory collapse [None]
  - Left ventricular dysfunction [None]
  - Hypotension [None]
  - Bradycardia [None]
  - Supraventricular tachycardia [None]
